FAERS Safety Report 8481600 (Version 2)
Quarter: 2012Q4

REPORT INFORMATION
  Report Type: Spontaneous
  Country: US (occurrence: US)
  Receive Date: 20120329
  Receipt Date: 20121218
  Transmission Date: 20130627
  Serious: Yes (Other)
  Sender: FDA-Public Use
  Company Number: PHEH2012US006627

PATIENT
  Sex: Female

DRUGS (2)
  1. ZOMETA (ZOLEDRONATE) SOLUTION FOR INJECTION [Suspect]
     Indication: METASTASES TO BONE
     Route: 042
  2. FEMARA (LETROZOLE) [Concomitant]

REACTIONS (1)
  - Osteonecrosis of jaw [Unknown]
